FAERS Safety Report 9191572 (Version 2)
Quarter: 2019Q3

REPORT INFORMATION
  Report Type: Report from Study
  Country: PL (occurrence: PL)
  Receive Date: 20130326
  Receipt Date: 20190808
  Transmission Date: 20191005
  Serious: Yes (Death, Hospitalization, Other)
  Sender: FDA-Public Use
  Company Number: PL-ACTELION-A-CH2013-81169

PATIENT
  Sex: Female

DRUGS (1)
  1. TRACLEER [Suspect]
     Active Substance: BOSENTAN
     Indication: PULMONARY ARTERIAL HYPERTENSION
     Route: 048

REACTIONS (5)
  - Pulmonary arterial hypertension [Fatal]
  - Condition aggravated [Unknown]
  - Lung transplant rejection [Unknown]
  - Lung transplant [Unknown]
  - Disease progression [Fatal]

NARRATIVE: CASE EVENT DATE: 201203
